FAERS Safety Report 26169577 (Version 1)
Quarter: 2025Q4

REPORT INFORMATION
  Report Type: Spontaneous
  Country: US (occurrence: US)
  Receive Date: 20251217
  Receipt Date: 20251217
  Transmission Date: 20260117
  Serious: Yes (Hospitalization, Other)
  Sender: Otter
  Company Number: US-OTTER-US-2025AST000292

PATIENT
  Age: 5 Year
  Sex: Female

DRUGS (1)
  1. METHOTREXATE [Suspect]
     Active Substance: METHOTREXATE
     Indication: Acute lymphocytic leukaemia
     Dosage: UNK
     Route: 065

REACTIONS (11)
  - Toxicity to various agents [Unknown]
  - Mental status changes [Recovering/Resolving]
  - Bronchopulmonary aspergillosis [Unknown]
  - Septic embolus [Unknown]
  - Delirium [Recovering/Resolving]
  - Febrile neutropenia [Unknown]
  - Pulmonary necrosis [Unknown]
  - Lung abscess [Unknown]
  - Encephalopathy [Unknown]
  - Haematemesis [Unknown]
  - Off label use [Unknown]
